FAERS Safety Report 7391409-5 (Version None)
Quarter: 2011Q2

REPORT INFORMATION
  Report Type: 
  Country: None (occurrence: None)
  Receive Date: 20110404
  Receipt Date: 20110321
  Transmission Date: 20111010
  Serious: Yes (Hospitalization)
  Sender: FDA-Public Use
  Company Number: US-AMGEN-USASP2011013852

PATIENT
  Age: 71 Year
  Sex: Female
  Weight: 51.247 kg

DRUGS (2)
  1. VECTIBIX [Suspect]
     Indication: COLORECTAL CANCER
     Dosage: 318 MG, Q2WK
     Route: 042
     Dates: start: 20101214, end: 20110222
  2. DOXYCYCLINE [Concomitant]
     Dosage: UNK
     Dates: start: 20110208

REACTIONS (4)
  - RASH [None]
  - PYODERMA GANGRENOSUM [None]
  - FUNGAL SKIN INFECTION [None]
  - DRUG ERUPTION [None]
